FAERS Safety Report 5244453-8 (Version None)
Quarter: 2007Q1

REPORT INFORMATION
  Report Type: 
  Country: None (occurrence: None)
  Receive Date: 20070222
  Receipt Date: 20070221
  Transmission Date: 20070707
  Serious: Yes (Death)
  Sender: FDA-Public Use
  Company Number: US-GLAXOSMITHKLINE-A0640232A

PATIENT
  Age: 51 Year
  Sex: Female

DRUGS (2)
  1. BC POWDER [Suspect]
     Indication: HEADACHE
     Dosage: 2Z PER DAY
     Route: 048
  2. BLOOD PRESSURE MEDICATION [Concomitant]

REACTIONS (3)
  - COMA [None]
  - GASTRITIS EROSIVE [None]
  - INTRACRANIAL ANEURYSM [None]
